FAERS Safety Report 7967068-7 (Version None)
Quarter: 2011Q4

REPORT INFORMATION
  Report Type: 
  Country: None (occurrence: None)
  Receive Date: 20111207
  Receipt Date: 20111207
  Transmission Date: 20120403
  Serious: Yes (Hospitalization)
  Sender: FDA-Public Use
  Company Number: None

PATIENT
  Sex: Male
  Weight: 71.1 kg

DRUGS (5)
  1. VINCRISTINE SULFATE [Suspect]
     Dosage: 4 MG
  2. PEG-L-ASPARAGINASE (K-H) [Suspect]
     Dosage: 4750 MG
  3. DOXORUBICIN HCL [Suspect]
     Dosage: 95 MG
  4. METHOTREXATE [Suspect]
     Dosage: 15 MG
  5. CYTARABINE [Suspect]
     Dosage: 70 MG

REACTIONS (4)
  - HAEMORRHAGIC CEREBRAL INFARCTION [None]
  - GRAND MAL CONVULSION [None]
  - BRAIN HERNIATION [None]
  - BRAIN OEDEMA [None]
